FAERS Safety Report 5946652-6 (Version None)
Quarter: 2008Q4

REPORT INFORMATION
  Report Type: 
  Country: None (occurrence: None)
  Receive Date: 20081110
  Receipt Date: 20081103
  Transmission Date: 20090506
  Serious: Yes (Other)
  Sender: FDA-Public Use
  Company Number: DE-ROCHE-595124

PATIENT
  Age: 41 Year
  Sex: Male

DRUGS (1)
  1. ROFERON-A [Suspect]
     Indication: DRUG USE FOR UNKNOWN INDICATION
     Dosage: DOSAGE REGIMEN: 3X3 MILLION UNITS/WEEK.
     Route: 065
     Dates: start: 20070201

REACTIONS (3)
  - ARTHRALGIA [None]
  - MALIGNANT MELANOMA [None]
  - NIGHTMARE [None]
